FAERS Safety Report 23845764 (Version 1)
Quarter: 2024Q2

REPORT INFORMATION
  Report Type: Other
  Country: JP (occurrence: JP)
  Receive Date: 20240512
  Receipt Date: 20240512
  Transmission Date: 20240715
  Serious: Yes (Other)
  Sender: FDA-Public Use
  Company Number: JP-DEXPHARM-2024-1170

PATIENT
  Age: 79 Year
  Sex: Female

DRUGS (3)
  1. PREDNISOLONE [Suspect]
     Active Substance: PREDNISOLONE
     Indication: Autoimmune hepatitis
     Dosage: 5 MG DAILY
  2. PREDNISOLONE [Suspect]
     Active Substance: PREDNISOLONE
     Indication: Autoimmune hepatitis
     Dosage: 40 MG DAILY
  3. ESOMEPRAZOLE [Suspect]
     Active Substance: ESOMEPRAZOLE
     Indication: Autoimmune hepatitis
     Dosage: 10 MG DAILY

REACTIONS (2)
  - Chronic gastritis [Not Recovered/Not Resolved]
  - Gastric polyps [Not Recovered/Not Resolved]
